FAERS Safety Report 14787249 (Version 1)
Quarter: 2018Q2

REPORT INFORMATION
  Report Type: Spontaneous
  Country: DE (occurrence: DE)
  Receive Date: 20180421
  Receipt Date: 20180421
  Transmission Date: 20180711
  Serious: Yes (Life-Threatening, Hospitalization)
  Sender: FDA-Public Use
  Company Number: DE-ROCHE-2108429

PATIENT
  Age: 61 Year
  Sex: Female
  Weight: 73 kg

DRUGS (4)
  1. RANITIDIN [Concomitant]
     Active Substance: RANITIDINE HYDROCHLORIDE
     Indication: PREMEDICATION
     Dosage: DAILY DOSE: 50 MG MILLGRAM(S) EVERY TOTAL
     Route: 042
     Dates: start: 20180320
  2. GAZYVARO [Suspect]
     Active Substance: OBINUTUZUMAB
     Indication: B-CELL LYMPHOMA RECURRENT
     Dosage: DURATION OF DRUG ADMINISTRATION: 30 MINUTES
     Route: 042
     Dates: start: 20180302
  3. FENISTIL (GERMANY) [Concomitant]
     Indication: PREMEDICATION
     Dosage: DAILY DOSE: 4 MG MILLGRAM(S) EVERY TOTAL
     Route: 042
     Dates: start: 20180320
  4. GRANISETRON [Concomitant]
     Active Substance: GRANISETRON
     Indication: PREMEDICATION
     Dosage: DAILY DOSE: 1 MG MILLGRAM(S) EVERY TOTAL
     Route: 042
     Dates: start: 20180320

REACTIONS (2)
  - Dyspnoea [Recovered/Resolved]
  - Cyanosis [Recovered/Resolved]

NARRATIVE: CASE EVENT DATE: 20180320
